FAERS Safety Report 24774582 (Version 2)
Quarter: 2025Q1

REPORT INFORMATION
  Report Type: Spontaneous
  Country: CN (occurrence: CN)
  Receive Date: 20241226
  Receipt Date: 20250102
  Transmission Date: 20250409
  Serious: No
  Sender: Haleon PLC
  Company Number: CN-HALEON-2218149

PATIENT
  Age: 25 Year
  Sex: Male
  Weight: 130 kg

DRUGS (2)
  1. IBUPROFEN [Suspect]
     Active Substance: IBUPROFEN
     Indication: Pain
     Dosage: ONE CAPSULE AT A TIME, TWICE A DAY
     Route: 048
     Dates: start: 20241126, end: 20241127
  2. IBUPROFEN [Suspect]
     Active Substance: IBUPROFEN
     Indication: Swelling face

REACTIONS (2)
  - Skin plaque [Recovering/Resolving]
  - Pruritus [Recovering/Resolving]

NARRATIVE: CASE EVENT DATE: 20241127
